FAERS Safety Report 9736095 (Version 2)
Quarter: 2013Q4

REPORT INFORMATION
  Report Type: Spontaneous
  Country: US (occurrence: US)
  Receive Date: 20131206
  Receipt Date: 20131223
  Transmission Date: 20140711
  Serious: Yes (Other)
  Sender: FDA-Public Use
  Company Number: CHPA2013US017928

PATIENT
  Age: 85 Year
  Sex: Female

DRUGS (3)
  1. EX-LAX MAX STR LAX PILLS SENNA [Suspect]
     Dosage: 2 DF, UNK
     Route: 048
  2. EX-LAX MAX STR LAX PILLS SENNA [Suspect]
     Dosage: 3 DF, ONCE/SINGLE
     Route: 048
     Dates: start: 20131201, end: 20131201
  3. PAXIL//PAROXETINE HYDROCHLORIDE [Concomitant]
     Dosage: UNK, UNK
     Dates: start: 201311

REACTIONS (2)
  - Myocardial infarction [Unknown]
  - Incorrect dose administered [Unknown]
